FAERS Safety Report 8587594 (Version 2)
Quarter: 2014Q2

REPORT INFORMATION
  Report Type: Spontaneous
  Country: CA (occurrence: CA)
  Receive Date: 20120531
  Receipt Date: 20140402
  Transmission Date: 20141212
  Serious: Yes (Other)
  Sender: FDA-Public Use
  Company Number: CA-JNJFOC-20120517711

PATIENT
  Age: 35 Year
  Sex: Female
  Weight: 67 kg

DRUGS (7)
  1. REMICADE [Suspect]
     Indication: CROHN^S DISEASE
     Route: 042
  2. REMICADE [Suspect]
     Indication: CROHN^S DISEASE
     Dosage: 4TH MAINTENANCE DOSE
     Route: 042
     Dates: start: 20120522
  3. REMICADE [Suspect]
     Indication: CROHN^S DISEASE
     Route: 042
     Dates: start: 2003
  4. IMURAN [Concomitant]
     Indication: CROHN^S DISEASE
     Route: 065
  5. BENADRYL [Concomitant]
     Indication: PREMEDICATION
     Route: 048
  6. TYLENOL [Concomitant]
     Indication: PREMEDICATION
     Route: 048
  7. SOLU-CORTEF [Concomitant]
     Indication: PREMEDICATION
     Route: 042

REACTIONS (5)
  - Infusion related reaction [Recovered/Resolved]
  - Palpitations [Recovered/Resolved]
  - Hypertension [Recovered/Resolved]
  - Infusion site paraesthesia [Recovered/Resolved]
  - Dizziness [Recovered/Resolved]
